FAERS Safety Report 9092814 (Version 1)
Quarter: 2013Q1

REPORT INFORMATION
  Report Type: Spontaneous
  Country: US (occurrence: None)
  Receive Date: 20130213
  Receipt Date: 20130213
  Transmission Date: 20140127
  Serious: Yes (Other)
  Sender: FDA-Public Use
  Company Number: None

PATIENT
  Age: 48 Year
  Sex: Female
  Weight: 78 kg

DRUGS (11)
  1. ELOXATIN [Suspect]
     Indication: COLORECTAL CANCER
     Dates: start: 20120828, end: 20130211
  2. OXALIPLATIN [Suspect]
  3. ONDANSETRON [Concomitant]
  4. DEXAMETHASONE [Concomitant]
  5. LEUCOVORIN [Concomitant]
  6. KCL [Concomitant]
  7. HCTZ [Concomitant]
  8. LOSARTA [Concomitant]
  9. METFORMIN [Concomitant]
  10. METOPROLOL [Concomitant]
  11. HYDROCODONE [Concomitant]

REACTIONS (3)
  - Pruritus [None]
  - Pruritus [None]
  - Induration [None]
